FAERS Safety Report 4791682-3 (Version None)
Quarter: 2005Q4

REPORT INFORMATION
  Report Type: 
  Country: None (occurrence: None)
  Receive Date: 20051007
  Receipt Date: 20051005
  Transmission Date: 20060501
  Serious: Yes (Other)
  Sender: FDA-Public Use
  Company Number: US-GLAXOSMITHKLINE-A0577179A

PATIENT
  Age: 52 Year
  Sex: Female

DRUGS (1)
  1. AVODART [Suspect]
     Indication: ANTIANDROGEN THERAPY
     Route: 065

REACTIONS (1)
  - MUSCLE ATROPHY [None]
